FAERS Safety Report 24093502 (Version 1)
Quarter: 2024Q3

REPORT INFORMATION
  Report Type: Spontaneous
  Country: GB (occurrence: GB)
  Receive Date: 20240715
  Receipt Date: 20240715
  Transmission Date: 20241016
  Serious: Yes (Death, Life-Threatening, Other)
  Sender: MERCK
  Company Number: None

PATIENT
  Sex: Female

DRUGS (2)
  1. PEMBROLIZUMAB [Suspect]
     Active Substance: PEMBROLIZUMAB
     Indication: Renal cell carcinoma stage IV
     Dosage: 1 DOSE IV INFUSION
     Route: 042
     Dates: start: 20240508
  2. LENVATINIB MESYLATE [Concomitant]
     Active Substance: LENVATINIB MESYLATE
     Indication: Renal cell carcinoma stage IV
     Dates: start: 20240508

REACTIONS (1)
  - Immune effector cell-associated HLH-like syndrome [Fatal]

NARRATIVE: CASE EVENT DATE: 20240616
